FAERS Safety Report 8455796-9 (Version None)
Quarter: 2012Q2

REPORT INFORMATION
  Report Type: 
  Country: None (occurrence: None)
  Receive Date: 20120613
  Receipt Date: 20120530
  Transmission Date: 20120825
  Serious: Yes (Other)
  Sender: FDA-Public Use
  Company Number: DSA_57779_2012

PATIENT
  Age: 67 Year
  Sex: Female

DRUGS (12)
  1. IDARUBICIN HCL [Suspect]
     Indication: ACUTE MYELOID LEUKAEMIA
     Dosage: (12 MG/M2)
  2. CYCLOPHOSPHAMIDE [Suspect]
     Indication: BREAST CANCER
     Dosage: (DF), (DF), (DF), (DF)
  3. CYTARABINE [Suspect]
     Indication: ACUTE MYELOID LEUKAEMIA
     Dosage: SEE IMAGE
     Route: 042
  4. CYTARABINE [Suspect]
     Indication: ACUTE MYELOID LEUKAEMIA
     Dosage: SEE IMAGE
     Route: 042
  5. CYTARABINE [Suspect]
     Indication: ACUTE MYELOID LEUKAEMIA
     Dosage: SEE IMAGE
     Route: 042
  6. CYTARABINE [Suspect]
     Indication: ACUTE MYELOID LEUKAEMIA
     Dosage: SEE IMAGE
     Route: 042
  7. TRASTUZUMAB (TRASTUZUMAB) [Suspect]
     Indication: BREAST CANCER
     Dosage: (1 DF 3X/WEEK)
  8. MITOXANTRONE [Suspect]
     Indication: ACUTE MYELOID LEUKAEMIA
     Dosage: (7 MG/M2)
  9. EPIRUBICIN [Suspect]
     Indication: BREAST CANCER
     Dosage: (DF), (DF), (DF), (DF)
  10. DOCETAXEL [Suspect]
     Indication: BREAST CANCER
     Dosage: (DF), (DF), (DF), (DF)
  11. FLUOROURACIL [Suspect]
     Indication: BREAST CANCER
     Dosage: (DF), (DF), (DF), (DF)
  12. TEGAFUR URACIL (TEGAFUR/URACIL) [Suspect]
     Indication: COLON CANCER
     Dosage: (DF ORAL)
     Route: 048

REACTIONS (3)
  - PAPULE [None]
  - PYREXIA [None]
  - ACUTE MYELOID LEUKAEMIA [None]
